FAERS Safety Report 5384576-6 (Version None)
Quarter: 2007Q3

REPORT INFORMATION
  Report Type: 
  Country: None (occurrence: None)
  Receive Date: 20070711
  Receipt Date: 20070702
  Transmission Date: 20080115
  Serious: Yes (Hospitalization, Other)
  Sender: FDA-Public Use
  Company Number: US-PFIZER INC-2006119897

PATIENT
  Sex: Female
  Weight: 90.3 kg

DRUGS (3)
  1. CELEBREX [Suspect]
     Indication: PAIN IN EXTREMITY
  2. BEXTRA [Suspect]
     Indication: PAIN
     Dates: start: 20020101, end: 20020101
  3. VIOXX [Suspect]
     Indication: PAIN IN EXTREMITY
     Dates: start: 19990501, end: 20040930

REACTIONS (3)
  - CARDIOVASCULAR DISORDER [None]
  - CEREBROVASCULAR ACCIDENT [None]
  - DEEP VEIN THROMBOSIS [None]
